FAERS Safety Report 7407613-3 (Version None)
Quarter: 2011Q2

REPORT INFORMATION
  Report Type: 
  Country: None (occurrence: None)
  Receive Date: 20110404
  Receipt Date: 20110323
  Transmission Date: 20111010
  Serious: Yes (Life-Threatening, Hospitalization)
  Sender: FDA-Public Use
  Company Number: 029091

PATIENT
  Sex: Female

DRUGS (9)
  1. AMITRID [Concomitant]
  2. CIMZIA [Suspect]
     Indication: RHEUMATOID ARTHRITIS
     Dosage: SUBCUTANEOUS
     Route: 058
     Dates: start: 20100601, end: 20100919
  3. ALENDRONATE SODIUM [Concomitant]
  4. SULFASALAZINE [Concomitant]
  5. CALCICHEW [Concomitant]
  6. PREDNISONE [Concomitant]
  7. METHOTREXATE [Concomitant]
  8. OXIKLORIN [Concomitant]
  9. KALCIPOS [Concomitant]

REACTIONS (1)
  - URINARY TRACT INFECTION [None]
